FAERS Safety Report 25067562 (Version 3)
Quarter: 2025Q2

REPORT INFORMATION
  Report Type: Spontaneous
  Country: NL (occurrence: NL)
  Receive Date: 20250312
  Receipt Date: 20250407
  Transmission Date: 20250716
  Serious: Yes (Life-Threatening, Hospitalization)
  Sender: MACLEODS
  Company Number: NL-MACLEODS PHARMA-MAC2025052089

PATIENT

DRUGS (2)
  1. OLANZAPINE PAMOATE [Suspect]
     Active Substance: OLANZAPINE PAMOATE
     Indication: Psychotic disorder
     Route: 030
  2. OLANZAPINE PAMOATE [Suspect]
     Active Substance: OLANZAPINE PAMOATE
     Route: 030

REACTIONS (6)
  - Post-injection delirium sedation syndrome [Recovered/Resolved]
  - Sinus tachycardia [Recovered/Resolved]
  - Electrocardiogram QT prolonged [Recovered/Resolved]
  - Antipsychotic drug level increased [Recovered/Resolved]
  - Hypertension [Recovered/Resolved]
  - Overdose [Recovered/Resolved]
